FAERS Safety Report 12627616 (Version 1)
Quarter: 2016Q3

REPORT INFORMATION
  Report Type: Spontaneous
  Country: US (occurrence: US)
  Receive Date: 20160805
  Receipt Date: 20160805
  Transmission Date: 20161109
  Serious: Yes (Other)
  Sender: FDA-Public Use
  Company Number: US-ELI_LILLY_AND_COMPANY-US201607012096

PATIENT
  Sex: Female
  Weight: 74.84 kg

DRUGS (2)
  1. CYMBALTA [Suspect]
     Active Substance: DULOXETINE HYDROCHLORIDE
     Indication: FIBROMYALGIA
     Dosage: 150 MG, BID
     Route: 065
  2. CYMBALTA [Suspect]
     Active Substance: DULOXETINE HYDROCHLORIDE
     Indication: NEURALGIA

REACTIONS (11)
  - Cataract [Unknown]
  - Nerve injury [Unknown]
  - Lymphadenitis bacterial [Unknown]
  - Autoimmune disorder [Unknown]
  - Pneumonia [Unknown]
  - Prescribed overdose [Unknown]
  - Drug ineffective [Unknown]
  - Infection [Unknown]
  - Central nervous system infection [Unknown]
  - Hyperaesthesia [Unknown]
  - Depression [Unknown]
